FAERS Safety Report 10255937 (Version 2)
Quarter: 2014Q4

REPORT INFORMATION
  Report Type: Spontaneous
  Country: US (occurrence: US)
  Receive Date: 20140624
  Receipt Date: 20141015
  Transmission Date: 20150528
  Serious: Yes (Hospitalization, Other)
  Sender: FDA-Public Use
  Company Number: US-GLAXOSMITHKLINE-A1078108A

PATIENT
  Age: 64 Year
  Sex: Male

DRUGS (24)
  1. MAGNESIUM [Concomitant]
     Active Substance: MAGNESIUM
  2. VITAMIN B12 [Concomitant]
     Active Substance: CYANOCOBALAMIN
  3. COREG CR [Suspect]
     Active Substance: CARVEDILOL PHOSPHATE
     Indication: PRODUCT USED FOR UNKNOWN INDICATION
     Dosage: 20 MG, BID
     Dates: start: 2007
  4. NEXIUM [Concomitant]
     Active Substance: ESOMEPRAZOLE MAGNESIUM
  5. ISOSORBIDE [Concomitant]
     Active Substance: ISOSORBIDE
  6. TRENTAL [Concomitant]
     Active Substance: PENTOXIFYLLINE
  7. NEURONTIN [Concomitant]
     Active Substance: GABAPENTIN
  8. COENZYME Q-10 [Concomitant]
  9. ALPHALIPOIC ACID [Concomitant]
  10. LOSARTAN [Concomitant]
     Active Substance: LOSARTAN
  11. INFLUENZA VACCINE [Concomitant]
     Active Substance: INFLUENZA VIRUS VACCINE
  12. NOVOLIN N [Concomitant]
     Active Substance: INSULIN HUMAN
  13. NOVOLOG [Concomitant]
     Active Substance: INSULIN ASPART
  14. TRICOR [Concomitant]
     Active Substance: FENOFIBRATE
  15. OXYGEN. [Concomitant]
     Active Substance: OXYGEN
  16. SUPER B COMPLEX [Concomitant]
     Active Substance: CYANOCOBALAMIN\DEXPANTHENOL\NIACINAMIDE\PYRIDOXINE HYDROCHLORIDE\RIBOFLAVIN 5^-PHOSPHATE SODIUM\THIAMINE HYDROCHLORIDE\VITAMIN B COMPLEX
  17. VITAMIN D [Concomitant]
     Active Substance: CHOLECALCIFEROL
  18. ALBUTEROL. [Concomitant]
     Active Substance: ALBUTEROL
  19. BIPAP [Concomitant]
     Active Substance: DEVICE
  20. HYDRALAZINE [Concomitant]
     Active Substance: HYDRALAZINE HYDROCHLORIDE
  21. MULTIVITAMINS WITH MINERALS [Concomitant]
     Active Substance: MINERALS\VITAMINS
  22. FISH OIL [Concomitant]
     Active Substance: FISH OIL
  23. ASPIRIN. [Concomitant]
     Active Substance: ASPIRIN
  24. ZOCOR [Concomitant]
     Active Substance: SIMVASTATIN

REACTIONS (3)
  - Dialysis [Unknown]
  - Renal failure [Unknown]
  - Cardiac failure congestive [Unknown]

NARRATIVE: CASE EVENT DATE: 201206
